FAERS Safety Report 13135805 (Version 6)
Quarter: 2018Q2

REPORT INFORMATION
  Report Type: Report from Study
  Country: US (occurrence: US)
  Receive Date: 20170120
  Receipt Date: 20180501
  Transmission Date: 20180711
  Serious: Yes (Hospitalization)
  Sender: FDA-Public Use
  Company Number: US-ACTELION-A-US2017-148757

PATIENT
  Age: 77 Year
  Sex: Female
  Weight: 61.22 kg

DRUGS (4)
  1. AMLODIPINE [Concomitant]
     Active Substance: AMLODIPINE BESYLATE
  2. REVATIO [Concomitant]
     Active Substance: SILDENAFIL CITRATE
  3. VENTAVIS [Suspect]
     Active Substance: ILOPROST
     Indication: PULMONARY ARTERIAL HYPERTENSION
     Dosage: 5 MCG, 6-9X/DAY
     Route: 055
     Dates: start: 20160602
  4. VENTAVIS [Suspect]
     Active Substance: ILOPROST
     Dosage: UNK
     Route: 055

REACTIONS (15)
  - Cough [Unknown]
  - Muscular weakness [Unknown]
  - Balance disorder [Unknown]
  - Dyspnoea [Unknown]
  - Fall [Unknown]
  - Back pain [Unknown]
  - Respiratory disorder [Unknown]
  - Pneumonia [Unknown]
  - Bronchitis [Unknown]
  - Arthralgia [Unknown]
  - Lip pain [Unknown]
  - Contusion [Unknown]
  - Pulmonary arterial hypertension [Unknown]
  - Productive cough [Unknown]
  - Oral pain [Unknown]

NARRATIVE: CASE EVENT DATE: 20180202
